FAERS Safety Report 11043863 (Version 1)
Quarter: 2015Q2

REPORT INFORMATION
  Report Type: Spontaneous
  Country: US (occurrence: None)
  Receive Date: 20150415
  Receipt Date: 20150415
  Transmission Date: 20150821
  Serious: Yes (Death, Hospitalization)
  Sender: FDA-Public Use
  Company Number: FK201501696

PATIENT
  Age: 53 Year
  Sex: Male

DRUGS (2)
  1. CYTARABINE (MANUFACTURER UNKNOWN) (CYTARABINE) (CYTARABINE) [Suspect]
     Active Substance: CYTARABINE
     Indication: ACUTE MYELOID LEUKAEMIA
  2. DAUNORUBICIN (DAUNORUBICIN) (DAUNORUBICIN) [Suspect]
     Active Substance: DAUNORUBICIN
     Indication: ACUTE MYELOID LEUKAEMIA

REACTIONS (5)
  - Acute abdomen [None]
  - Zygomycosis [None]
  - Gastrointestinal disorder [None]
  - Leukopenia [None]
  - Neutropenia [None]
